FAERS Safety Report 15921388 (Version 1)
Quarter: 2019Q1

REPORT INFORMATION
  Report Type: Spontaneous
  Country: US (occurrence: US)
  Receive Date: 20190115
  Receipt Date: 20190115
  Transmission Date: 20190417
  Serious: Yes (Hospitalization)
  Sender: FDA-Public Use
  Company Number: None

PATIENT
  Age: 59 Year
  Sex: Female

DRUGS (1)
  1. XOLAIR [Suspect]
     Active Substance: OMALIZUMAB
     Indication: ASTHMA
     Dosage: 300 MG Q 28 DAYS SC
     Route: 058
     Dates: start: 20181205

REACTIONS (3)
  - Wheezing [None]
  - Dyspnoea [None]
  - Bronchitis [None]

NARRATIVE: CASE EVENT DATE: 20181227
